FAERS Safety Report 9360398 (Version 1)
Quarter: 2013Q2

REPORT INFORMATION
  Report Type: Spontaneous
  Country: US (occurrence: US)
  Receive Date: 20130621
  Receipt Date: 20130621
  Transmission Date: 20140414
  Serious: Yes (Hospitalization)
  Sender: FDA-Public Use
  Company Number: US-BAYER-2013-076475

PATIENT
  Age: 45 Year
  Sex: Female

DRUGS (12)
  1. YAZ [Suspect]
     Indication: NIGHT SWEATS
  2. YAZ [Suspect]
     Indication: MENORRHAGIA
  3. ZOLOFT [Concomitant]
  4. SYNTHROID [Concomitant]
  5. SINGULAIR [Concomitant]
  6. PRILOSEC [Concomitant]
  7. LIALDA [Concomitant]
  8. ENTOCORT [Concomitant]
  9. NORCO [Concomitant]
  10. AMBIEN [Concomitant]
  11. BIOTIN [Concomitant]
  12. VITAMIN B12 [Concomitant]

REACTIONS (1)
  - Deep vein thrombosis [None]
